FAERS Safety Report 8463662-8 (Version None)
Quarter: 2012Q2

REPORT INFORMATION
  Report Type: 
  Country: None (occurrence: None)
  Receive Date: 20120625
  Receipt Date: 20120618
  Transmission Date: 20120825
  Serious: Yes (Hospitalization)
  Sender: FDA-Public Use
  Company Number: JP-EISAI INC-E2090-02062-SPO-JP

PATIENT
  Age: 5 Year
  Sex: Male

DRUGS (2)
  1. ACTH [Suspect]
  2. ZONISAMIDE [Suspect]
     Dosage: 3 MILLIGRAM/KILLIGRAM
     Route: 048

REACTIONS (1)
  - RENAL FAILURE [None]
